FAERS Safety Report 5855636-8 (Version None)
Quarter: 2008Q3

REPORT INFORMATION
  Report Type: 
  Country: None (occurrence: None)
  Receive Date: 20080823
  Receipt Date: 20080814
  Transmission Date: 20090109
  Serious: Yes (Hospitalization)
  Sender: FDA-Public Use
  Company Number: US-ELI_LILLY_AND_COMPANY-US200807005188

PATIENT
  Sex: Female
  Weight: 90.703 kg

DRUGS (6)
  1. BYETTA [Suspect]
     Indication: TYPE 2 DIABETES MELLITUS
     Dosage: 5 UG, 2/D
     Route: 058
     Dates: start: 20050825
  2. BYETTA [Suspect]
     Dosage: 10 UG, 2/D
     Route: 058
     Dates: start: 20050926
  3. BYETTA [Suspect]
     Dosage: 5 UG, 2/D
     Route: 058
     Dates: start: 20080301, end: 20080501
  4. METFORMIN [Concomitant]
     Indication: DIABETES MELLITUS
     Dosage: UNK, DAILY (1/D)
  5. ANTIHYPERTENSIVES [Concomitant]
  6. SYNTHROID [Concomitant]
     Dosage: UNK, UNKNOWN

REACTIONS (5)
  - ASTHENIA [None]
  - CORONARY ARTERY OCCLUSION [None]
  - HYPOTENSION [None]
  - JOINT DISLOCATION [None]
  - WEIGHT DECREASED [None]
